FAERS Safety Report 9392659 (Version 2)
Quarter: 2014Q1

REPORT INFORMATION
  Report Type: Report from Study
  Country: US (occurrence: US)
  Receive Date: 20130710
  Receipt Date: 20140110
  Transmission Date: 20141002
  Serious: Yes (Life-Threatening, Hospitalization, Other)
  Sender: FDA-Public Use
  Company Number: PHHO2013US002896

PATIENT
  Age: 55 Year
  Sex: Male
  Weight: 136 kg

DRUGS (20)
  1. BLINDED ACZ885 [Suspect]
     Indication: CARDIOVASCULAR EVENT PROPHYLAXIS
     Dosage: CODE NOT BROKEN
     Route: 058
     Dates: start: 20120620, end: 20120924
  2. BLINDED NO TREATMENT RECEIVED [Suspect]
     Indication: CARDIOVASCULAR EVENT PROPHYLAXIS
     Dosage: CODE NOT BROKEN
     Route: 058
     Dates: start: 20120620, end: 20120924
  3. BLINDED PLACEBO [Suspect]
     Indication: CARDIOVASCULAR EVENT PROPHYLAXIS
     Dosage: CODE NOT BROKEN
     Route: 058
     Dates: start: 20120620, end: 20120924
  4. OXYCODONE [Suspect]
     Indication: BACK PAIN
     Dosage: 10 MG, PRN
  5. OXYCODONE [Suspect]
     Indication: OSTEOARTHRITIS
  6. ANALGESICS [Suspect]
  7. ANTIBIOTICS [Suspect]
  8. EXALGO [Concomitant]
     Indication: BACK PAIN
     Dosage: 16 MG, TID
     Dates: start: 201203
  9. EXALGO [Concomitant]
     Indication: OSTEOARTHRITIS
  10. LYRICA [Concomitant]
     Indication: PAIN IN EXTREMITY
     Dosage: 75 MG, TID
  11. LYRICA [Concomitant]
     Indication: OSTEOARTHRITIS
  12. ASPIRIN [Concomitant]
     Indication: PROPHYLAXIS
     Dosage: 81 MG, QD
  13. BRILINTA [Concomitant]
     Dosage: 90 MG, BID
     Dates: start: 20120320
  14. METOPROLOL TARTRATE [Concomitant]
     Indication: HYPERTENSION
     Dosage: 50 MG, BID
  15. HYDROCHLOROTHIAZIDE [Concomitant]
     Indication: HYPERTENSION
     Dosage: 12.5 MG, QD
     Dates: start: 20120620
  16. RAMIPRIL [Concomitant]
     Indication: HYPERTENSION
     Dosage: 10 MG, BID
     Dates: start: 20120615
  17. TESTOSTERONE [Concomitant]
     Indication: ERECTILE DYSFUNCTION
     Dosage: 360 MG, QW
  18. MULTIVITAMINS [Concomitant]
     Dosage: 1 DF, QD
  19. PROTONIX [Concomitant]
     Indication: PROPHYLAXIS
     Dosage: 40 MG, QD
  20. NIFEDIPINE [Concomitant]
     Indication: HYPERTENSION
     Dosage: 60 MG, QD

REACTIONS (11)
  - Renal failure acute [Recovered/Resolved]
  - Hepatitis acute [Recovering/Resolving]
  - Urinary tract infection [Recovered/Resolved]
  - Anaemia [Recovering/Resolving]
  - Acute respiratory failure [Unknown]
  - Rhabdomyolysis [Recovering/Resolving]
  - Enzyme level increased [Recovering/Resolving]
  - Coagulopathy [Recovered/Resolved]
  - Liver function test abnormal [Recovering/Resolving]
  - Mental status changes [Recovering/Resolving]
  - Toxicity to various agents [Recovered/Resolved]
